FAERS Safety Report 22074308 (Version 5)
Quarter: 2023Q2

REPORT INFORMATION
  Report Type: Spontaneous
  Country: US (occurrence: US)
  Receive Date: 20230308
  Receipt Date: 20230519
  Transmission Date: 20230722
  Serious: Yes (Other)
  Sender: FDA-Public Use
  Company Number: US-PFIZER INC-PV202300044391

PATIENT
  Age: 85 Year
  Sex: Female
  Weight: 63.492 kg

DRUGS (1)
  1. BRAFTOVI [Suspect]
     Active Substance: ENCORAFENIB
     Indication: Neoplasm malignant
     Dosage: 75 MG, 4X/DAY (300MG)
     Route: 048
     Dates: end: 20230120

REACTIONS (3)
  - Hip fracture [Unknown]
  - Fall [Unknown]
  - Neoplasm progression [Unknown]
